FAERS Safety Report 23298327 (Version 1)
Quarter: 2023Q4

REPORT INFORMATION
  Report Type: Spontaneous
  Country: CZ (occurrence: CZ)
  Receive Date: 20231214
  Receipt Date: 20231214
  Transmission Date: 20240109
  Serious: Yes (Disabling, Other)
  Sender: FDA-Public Use
  Company Number: None

PATIENT
  Age: 66 Year
  Sex: Male
  Weight: 92 kg

DRUGS (5)
  1. OPDIVO [Suspect]
     Active Substance: NIVOLUMAB
     Indication: Malignant melanoma
     Dosage: DOSE 240MG EVERY 2 WEEKS THEN CHANGED TO 480MG EVERY 4 WEEKS
     Route: 042
     Dates: start: 20200219, end: 20211222
  2. OPDIVO [Suspect]
     Active Substance: NIVOLUMAB
     Dosage: DOSE 240MG EVERY 2 WEEKS THEN CHANGED TO 480MG EVERY 4 WEEKS
     Route: 042
     Dates: start: 20200219, end: 20211222
  3. ZOLEDRONIC ACID [Concomitant]
     Active Substance: ZOLEDRONIC ACID
     Indication: Malignant melanoma
     Route: 042
  4. AMLODIPINE BESYLATE\PERINDOPRIL ARGININE [Concomitant]
     Active Substance: AMLODIPINE BESYLATE\PERINDOPRIL ARGININE
     Indication: Hypertension
     Dosage: CHRONIC MEDICATION 1-0-0
     Route: 048
  5. BETAMED [BETAXOLOL HYDROCHLORIDE] [Concomitant]
     Indication: Hypertension
     Dosage: CHRONIC MEDICATION 1/2-0-0
     Route: 048

REACTIONS (3)
  - Muscle twitching [Not Recovered/Not Resolved]
  - Amyotrophic lateral sclerosis [Not Recovered/Not Resolved]
  - Brain stem syndrome [Not Recovered/Not Resolved]

NARRATIVE: CASE EVENT DATE: 20230512
